FAERS Safety Report 23830988 (Version 1)
Quarter: 2024Q2

REPORT INFORMATION
  Report Type: Spontaneous
  Country: US (occurrence: US)
  Receive Date: 20240508
  Receipt Date: 20240508
  Transmission Date: 20240716
  Serious: Yes (Other)
  Sender: FDA-Public Use
  Company Number: US-TEVA-VS-3195034

PATIENT
  Sex: Female

DRUGS (1)
  1. SPRINTEC [Suspect]
     Active Substance: ETHINYL ESTRADIOL\NORGESTIMATE
     Indication: Contraception
     Route: 065
     Dates: start: 202205, end: 20230626

REACTIONS (4)
  - Pyogenic granuloma [Unknown]
  - Noninfective gingivitis [Unknown]
  - Gingival bleeding [Unknown]
  - Recalled product administered [Unknown]

NARRATIVE: CASE EVENT DATE: 20221101
